FAERS Safety Report 9079578 (Version 4)
Quarter: 2013Q2

REPORT INFORMATION
  Report Type: Report from Study
  Country: US (occurrence: US)
  Receive Date: 20130215
  Receipt Date: 20130419
  Transmission Date: 20140414
  Serious: Yes (Death, Life-Threatening, Hospitalization)
  Sender: FDA-Public Use
  Company Number: US-PFIZER INC-2013056877

PATIENT
  Age: 61 Year
  Sex: Male
  Weight: 78 kg

DRUGS (6)
  1. TEMSIROLIMUS [Suspect]
     Indication: COLORECTAL CANCER METASTATIC
     Dosage: 20 MG, DAYS 1,8,15 AND 22
     Route: 042
     Dates: start: 20130115
  2. AMG386 [Suspect]
     Indication: COLORECTAL CANCER METASTATIC
     Dosage: 800MG, DAYS 1, 8, 15 AND 22
     Route: 042
     Dates: start: 20130115
  3. IMODIUM [Concomitant]
     Dosage: 2-4 MG, AS NEEDED
     Route: 048
     Dates: start: 20121219
  4. GRAVOL [Concomitant]
     Dosage: UNK
  5. TYLENOL [Concomitant]
     Dosage: UNK
  6. HYDROMORPHONE [Concomitant]
     Dosage: UNK

REACTIONS (6)
  - Multi-organ failure [Fatal]
  - Sepsis [Unknown]
  - Diarrhoea [Unknown]
  - Decreased appetite [Unknown]
  - Nausea [Unknown]
  - Large intestine perforation [Unknown]
